FAERS Safety Report 6030034-5 (Version None)
Quarter: 2008Q4

REPORT INFORMATION
  Report Type: 
  Country: None (occurrence: None)
  Receive Date: 20081222
  Receipt Date: 20080923
  Transmission Date: 20090506
  Serious: Yes (Other)
  Sender: FDA-Public Use
  Company Number: US-WYE-H06109008

PATIENT
  Age: 28 Year
  Weight: 54.48 kg

DRUGS (2)
  1. PRISTIQ [Suspect]
     Indication: DEPRESSION
     Dosage: 50 MG, FREQUENCY NOT SPECIFIED, ORAL
     Route: 048
     Dates: start: 20081003, end: 20081005
  2. WELLBUTRIN [Concomitant]

REACTIONS (5)
  - ARTHRALGIA [None]
  - ARTHRITIS [None]
  - NAUSEA [None]
  - PERIORBITAL OEDEMA [None]
  - URTICARIA [None]
